FAERS Safety Report 8718640 (Version 2)
Quarter: 2012Q4

REPORT INFORMATION
  Report Type: 
  Country: US (occurrence: US)
  Receive Date: 20120810
  Receipt Date: 20120911
  Transmission Date: 20130627
  Serious: No
  Sender: FDA-Public Use
  Company Number: US-ASTRAZENECA-2012SE07585

PATIENT
  Age: 67 Year
  Sex: Female

DRUGS (1)
  1. ARIMIDEX [Suspect]
     Route: 048

REACTIONS (8)
  - Adverse drug reaction [Unknown]
  - Depression [Unknown]
  - Anxiety [Unknown]
  - Memory impairment [Unknown]
  - Hearing impaired [Unknown]
  - Condition aggravated [Unknown]
  - Headache [Unknown]
  - Drug hypersensitivity [Unknown]
